FAERS Safety Report 16594668 (Version 2)
Quarter: 2019Q3

REPORT INFORMATION
  Report Type: Spontaneous
  Country: ES (occurrence: ES)
  Receive Date: 20190718
  Receipt Date: 20190725
  Transmission Date: 20191004
  Serious: Yes (Death, Hospitalization)
  Sender: FDA-Public Use
  Company Number: ES-MYLANLABS-2019M1067587

PATIENT
  Age: 69 Year
  Sex: Female
  Weight: 55 kg

DRUGS (14)
  1. ALLOPURINOL. [Concomitant]
     Active Substance: ALLOPURINOL
     Indication: PROPHYLAXIS
     Dosage: 300 MILLIGRAM, QD (300 MG, 1X/DAY)
     Route: 048
     Dates: start: 20180405
  2. DOXORUBICIN HYDROCHLORIDE. [Suspect]
     Active Substance: DOXORUBICIN HYDROCHLORIDE
     Indication: DIFFUSE LARGE B-CELL LYMPHOMA
     Dosage: 50 MILLIGRAM/SQ. METER, CYCLE (50 MG/M2, CYCLIC DAY 1)
     Route: 042
     Dates: start: 20180404, end: 20180404
  3. CYCLOPHOSPHAMIDE. [Suspect]
     Active Substance: CYCLOPHOSPHAMIDE
     Indication: DIFFUSE LARGE B-CELL LYMPHOMA
     Dosage: 750 MILLIGRAM/SQ. METER, CYCLE (750 MG/M2, DAY 1)
     Route: 042
     Dates: start: 20180404, end: 20180404
  4. ACTOCORTIN                         /00028603/ [Concomitant]
     Indication: ERYTHEMA
     Dosage: 10 MILLIGRAM, TOTAL (UNK, ONCE)
     Route: 042
     Dates: start: 20180404, end: 20180404
  5. SEPTRIN [Concomitant]
     Active Substance: SULFAMETHOXAZOLE\TRIMETHOPRIM
     Indication: INFECTION PROPHYLAXIS
     Dosage: UNK
     Route: 048
     Dates: start: 20180405
  6. NEULASTA [Concomitant]
     Active Substance: PEGFILGRASTIM
     Indication: INFECTION PROPHYLAXIS
     Dosage: UNK (AS PER PROTOCOL, UNK)
     Dates: start: 20180405
  7. RITUXIMAB. [Suspect]
     Active Substance: RITUXIMAB
     Indication: DIFFUSE LARGE B-CELL LYMPHOMA
     Dosage: 375 MILLIGRAM/SQ. METER, CYCLE (375 MG/M2, CYCLIC DAY1)
     Route: 042
     Dates: start: 20180404, end: 20180404
  8. ZOLPIDEM                           /00914902/ [Concomitant]
     Active Substance: ZOLPIDEM TARTRATE
     Indication: PROPHYLAXIS
     Dosage: 10 MILLIGRAM, QD (10 MG, 1X/DAY)
     Route: 048
     Dates: start: 20180323
  9. PREDNISONE. [Suspect]
     Active Substance: PREDNISONE
     Indication: DIFFUSE LARGE B-CELL LYMPHOMA
     Dosage: 100 MILLIGRAM, CYCLE (100 MG, CYCLIC DAYS 1-5)
     Route: 048
     Dates: start: 20180404, end: 20180408
  10. VINCRISTINE [Suspect]
     Active Substance: VINCRISTINE
     Dosage: 1.4 MILLIGRAM/SQ. METER, CYCLE
     Route: 042
     Dates: start: 20180404, end: 20180404
  11. VINCRISTINE [Suspect]
     Active Substance: VINCRISTINE
     Indication: DIFFUSE LARGE B-CELL LYMPHOMA
     Dosage: 4 MILLIGRAM/SQ. METER, CYCLE (4 MG/M2, CYCLIC)
     Route: 042
     Dates: start: 20180404, end: 20180404
  12. ACTOCORTIN                         /00028603/ [Concomitant]
     Indication: PROPHYLAXIS OF NAUSEA AND VOMITING
     Dosage: UNK
  13. CC-122 [Suspect]
     Active Substance: AVADOMIDE
     Indication: DIFFUSE LARGE B-CELL LYMPHOMA
     Dosage: 2 MILLIGRAM, CYCLE (2 MG, CYCLIC (DAYS 1-5 AND 8-12 FOR 10/21 DAYS)
     Route: 048
     Dates: start: 20180404, end: 20180408
  14. ONDASETRON                         /00955301/ [Concomitant]
     Active Substance: ONDANSETRON
     Indication: PROPHYLAXIS OF NAUSEA AND VOMITING
     Dosage: 72 MILLIGRAM, QD (24 MG, 3X/DAY)
     Route: 042
     Dates: start: 20180404, end: 20180406

REACTIONS (2)
  - Intestinal obstruction [Not Recovered/Not Resolved]
  - Respiratory failure [Fatal]

NARRATIVE: CASE EVENT DATE: 20180410
